FAERS Safety Report 21633292 (Version 1)
Quarter: 2022Q4

REPORT INFORMATION
  Report Type: Spontaneous
  Country: IE (occurrence: IE)
  Receive Date: 20221123
  Receipt Date: 20221123
  Transmission Date: 20230112
  Serious: Yes (Other)
  Sender: FDA-Public Use
  Company Number: IE-GSKCCFEMEA-Case-01614256_AE-64479

PATIENT

DRUGS (1)
  1. LAMICTAL [Suspect]
     Active Substance: LAMOTRIGINE
     Indication: Product used for unknown indication
     Dosage: 25MG
     Dates: start: 20221102

REACTIONS (2)
  - Arrhythmia [Unknown]
  - Product prescribing issue [Unknown]
